FAERS Safety Report 24106580 (Version 2)
Quarter: 2024Q3

REPORT INFORMATION
  Report Type: Spontaneous
  Country: AT (occurrence: AT)
  Receive Date: 20240717
  Receipt Date: 20240917
  Transmission Date: 20241016
  Serious: Yes (Life-Threatening, Hospitalization, Other)
  Sender: SANDOZ
  Company Number: None

PATIENT
  Age: 29 Year
  Sex: Male
  Weight: 88.2 kg

DRUGS (22)
  1. CYCLOPHOSPHAMIDE [Suspect]
     Active Substance: CYCLOPHOSPHAMIDE
     Dosage: UNK ROUTE OF ADMIN (FREE TEXT): INTRAVENOUS (NOT OTHERWISE SPECIFIED)
     Route: 065
     Dates: start: 20220202
  2. CYCLOPHOSPHAMIDE [Suspect]
     Active Substance: CYCLOPHOSPHAMIDE
     Indication: Diffuse large B-cell lymphoma
     Dosage: UNK
     Route: 042
     Dates: start: 20220202
  3. DOXORUBICIN HYDROCHLORIDE [Suspect]
     Active Substance: DOXORUBICIN HYDROCHLORIDE
     Indication: Diffuse large B-cell lymphoma
     Dosage: UNK
     Route: 042
     Dates: start: 20220202
  4. LENALIDOMIDE [Suspect]
     Active Substance: LENALIDOMIDE
     Indication: Diffuse large B-cell lymphoma
     Dosage: 25 MG, 1X PER DAY
     Route: 048
     Dates: start: 20220202
  5. LENALIDOMIDE [Suspect]
     Active Substance: LENALIDOMIDE
     Dosage: 25 MILLIGRAM, (LAST DOSE PRIOR TO EVENT ONSET)
     Route: 048
  6. PREDNISOLONE [Suspect]
     Active Substance: PREDNISOLONE
     Dosage: MILLIGRAM/SQ.METER ROUTE OF ADMIN (FREE TEXT): INTRAVENOUS (NOT OTHERWISE SPECIFIED)
     Route: 065
     Dates: start: 20220202
  7. PREDNISOLONE [Suspect]
     Active Substance: PREDNISOLONE
     Indication: Diffuse large B-cell lymphoma
     Dosage: MILLIGRAM/SQ.METER
     Route: 042
     Dates: start: 20220202
  8. RITUXIMAB [Suspect]
     Active Substance: RITUXIMAB
     Indication: Diffuse large B-cell lymphoma
     Dosage: UNK
     Route: 042
     Dates: start: 20220202
  9. RITUXIMAB [Suspect]
     Active Substance: RITUXIMAB
     Dosage: LAST DOSE PRIOR TO ONSET OF EVENT ROUTE OF ADMIN (FREE TEXT): INTRAVENOUS (NOT OTHERWISE SPECIFIED)
     Route: 065
     Dates: start: 20220608
  10. RITUXIMAB [Suspect]
     Active Substance: RITUXIMAB
     Dosage: LAST DOSE PRIOR TO ONSET OF EVENT ROUTE OF ADMIN (FREE TEXT): INTRAVENOUS (NOT OTHERWISE SPECIFIED)
     Route: 065
     Dates: start: 20220608
  11. RITUXIMAB [Suspect]
     Active Substance: RITUXIMAB
     Dosage: LAST DOSE PRIOR TO ONSET OF EVENT ROUTE OF ADMIN (FREE TEXT): INTRAVENOUS (NOT OTHERWISE SPECIFIED)
     Route: 042
     Dates: start: 20220608
  12. TAFASITAMAB [Suspect]
     Active Substance: TAFASITAMAB
     Dosage: 1044 MG (LAST DOSE PRIOR TO ONSET OF EVENT) ROUTE OF ADMIN (FREE TEXT): INTRAVENOUS (NOT OTHERWISE S
     Route: 042
     Dates: start: 20220608
  13. TAFASITAMAB [Suspect]
     Active Substance: TAFASITAMAB
     Indication: Diffuse large B-cell lymphoma
     Dosage: 912 MG
     Route: 042
     Dates: start: 20220202, end: 20220608
  14. VINCRISTINE [Suspect]
     Active Substance: VINCRISTINE
     Indication: Diffuse large B-cell lymphoma
     Dosage: UNK
     Route: 042
     Dates: start: 20220202
  15. BROTIZOLAM [Concomitant]
     Active Substance: BROTIZOLAM
     Indication: Insomnia
     Dosage: 0.25 MG
     Route: 048
     Dates: start: 20220617, end: 20220617
  16. Lidaprim [Concomitant]
     Indication: Prophylaxis
     Dosage: 80 MILLIGRAM, SINGLE
     Route: 048
     Dates: start: 20220204
  17. Lidaprim [Concomitant]
     Dosage: 160/800 MILLIGRAM
     Route: 048
     Dates: start: 20220204
  18. LOVENOX [Concomitant]
     Active Substance: ENOXAPARIN SODIUM
     Indication: Prophylaxis
     Dosage: 40 MILLIGRAM
     Route: 058
     Dates: start: 20220617, end: 20220621
  19. PANTOPRAZOLE SODIUM [Concomitant]
     Active Substance: PANTOPRAZOLE SODIUM
     Indication: Product used for unknown indication
     Dosage: 40 MILLIGRAM, SINGLE
     Route: 048
     Dates: start: 20220202
  20. PANTOPRAZOLE SODIUM [Concomitant]
     Active Substance: PANTOPRAZOLE SODIUM
     Dosage: 40 MG
     Route: 048
     Dates: start: 20220407
  21. ASPIRIN [Concomitant]
     Active Substance: ASPIRIN
     Indication: Product used for unknown indication
     Dosage: 100 MILLIGRAM, SINGLE
     Route: 048
     Dates: start: 20220203
  22. VALACYCLOVIR HYDROCHLORIDE [Concomitant]
     Active Substance: VALACYCLOVIR HYDROCHLORIDE
     Indication: Product used for unknown indication
     Dosage: 500 MILLIGRAM, SINGLE
     Route: 048
     Dates: start: 20220203

REACTIONS (2)
  - Febrile neutropenia [Recovered/Resolved]
  - Off label use [Recovered/Resolved]

NARRATIVE: CASE EVENT DATE: 20220617
